FAERS Safety Report 10278140 (Version 3)
Quarter: 2018Q1

REPORT INFORMATION
  Report Type: Report from Study
  Country: BR (occurrence: BR)
  Receive Date: 20140704
  Receipt Date: 20180312
  Transmission Date: 20180508
  Serious: Yes (Life-Threatening, Other)
  Sender: FDA-Public Use
  Company Number: PHHY2013BR125363

PATIENT
  Sex: Female
  Weight: 50 kg

DRUGS (6)
  1. ACLASTA [Suspect]
     Active Substance: ZOLEDRONIC ACID
     Indication: OSTEOPOROSIS
     Dosage: 1 DF (5MG/100ML), Q12MO
     Route: 042
     Dates: start: 20130901, end: 20130901
  2. RIVOTRIL [Concomitant]
     Active Substance: CLONAZEPAM
     Indication: PRODUCT USED FOR UNKNOWN INDICATION
     Route: 065
     Dates: start: 2010
  3. ACLASTA [Suspect]
     Active Substance: ZOLEDRONIC ACID
     Indication: OSTEOARTHRITIS
  4. OSTEONUTRI [Concomitant]
     Indication: PRODUCT USED FOR UNKNOWN INDICATION
     Route: 065
     Dates: start: 2012
  5. VITERGAN MASTER [Concomitant]
     Indication: PRODUCT USED FOR UNKNOWN INDICATION
     Route: 065
     Dates: start: 2013
  6. LIBIAM [Concomitant]
     Active Substance: TIBOLONE
     Indication: PRODUCT USED FOR UNKNOWN INDICATION
     Route: 065
     Dates: start: 2011

REACTIONS (11)
  - Weight decreased [Unknown]
  - Bladder disorder [Recovering/Resolving]
  - Asthenia [Recovering/Resolving]
  - Rheumatic disorder [Unknown]
  - Hypokinesia [Unknown]
  - Malaise [Unknown]
  - Pain [Recovering/Resolving]
  - Muscle atrophy [Unknown]
  - Gait inability [Recovering/Resolving]
  - Cystitis [Recovering/Resolving]
  - Renal disorder [Recovering/Resolving]
